FAERS Safety Report 8094445-9 (Version None)
Quarter: 2012Q1

REPORT INFORMATION
  Report Type: 
  Country: None (occurrence: None)
  Receive Date: 20120130
  Receipt Date: 20120118
  Transmission Date: 20120608
  Serious: Yes (Other)
  Sender: FDA-Public Use
  Company Number: JP-JNJFOC-20120109356

PATIENT
  Age: 54 Year
  Sex: Female

DRUGS (1)
  1. REMICADE [Suspect]
     Indication: RHEUMATOID ARTHRITIS
     Route: 042
     Dates: start: 20070301

REACTIONS (4)
  - INTERSTITIAL LUNG DISEASE [None]
  - DNA ANTIBODY POSITIVE [None]
  - DERMATOMYOSITIS [None]
  - ANTIBODY TEST POSITIVE [None]
